FAERS Safety Report 4487857-3 (Version None)
Quarter: 2004Q4

REPORT INFORMATION
  Report Type: 
  Country: None (occurrence: None)
  Receive Date: 20041027
  Receipt Date: 20041027
  Transmission Date: 20050328
  Serious: Yes (Other)
  Sender: FDA-Public Use
  Company Number: None

PATIENT
  Age: 53 Year
  Sex: Female
  Weight: 99.7913 kg

DRUGS (1)
  1. FLEXERIL [Suspect]
     Indication: BACK PAIN
     Dosage: 5 MG 3X DAILY ORAL
     Route: 048

REACTIONS (3)
  - CHEST PAIN [None]
  - DYSPNOEA [None]
  - PRURITUS [None]
